FAERS Safety Report 7769091-4 (Version None)
Quarter: 2011Q3

REPORT INFORMATION
  Report Type: 
  Country: None (occurrence: None)
  Receive Date: 20110922
  Receipt Date: 20110413
  Transmission Date: 20111222
  Serious: No
  Sender: FDA-Public Use
  Company Number: US-ASTRAZENECA-2010SE04260

PATIENT
  Age: 56 Year
  Sex: Female
  Weight: 89.8 kg

DRUGS (22)
  1. SEROQUEL [Suspect]
     Indication: INSOMNIA
     Route: 048
     Dates: start: 20040801, end: 20081201
  2. LESCOL XL [Concomitant]
     Dates: start: 20040527
  3. AMITRIPTYLINE HCL [Concomitant]
     Route: 048
     Dates: start: 20080812
  4. SEROQUEL [Suspect]
     Route: 048
     Dates: start: 20040825
  5. PLAVIX [Concomitant]
     Route: 048
     Dates: start: 20040228
  6. EFFEXOR XR [Concomitant]
     Dates: start: 20040304
  7. HYZAAR [Concomitant]
     Dosage: 100-25 MG ONE EVERY DAY
     Route: 048
     Dates: start: 20050331
  8. FLUCONAZOLE [Concomitant]
     Dates: start: 20050701
  9. SIMVASTATIN [Concomitant]
     Route: 048
     Dates: start: 20080812
  10. METOPROLOL/TOPROL XL [Concomitant]
     Dosage: 25 MG- 50 MG DAILY
     Route: 048
     Dates: start: 20040228
  11. LEVOTHROID/SYNTHROID [Concomitant]
     Dosage: 50 MCG- 75 MCG ONE EVERY DAY
     Route: 048
     Dates: start: 20040813
  12. CALCIUM CARBONATE [Concomitant]
     Dosage: 600-200 MG-UNIT 2 EVERY DAY
     Route: 048
     Dates: start: 20080812
  13. DIOVAN [Concomitant]
     Dates: start: 20040228
  14. ISOSORBIDE MONONITRATE [Concomitant]
     Dates: start: 20040304
  15. SINGULAIR [Concomitant]
     Dates: start: 20050424
  16. LUNESTA [Concomitant]
     Dates: start: 20050505
  17. BENEFIBER [Concomitant]
     Dosage: 2 EVERY DAY
     Route: 048
     Dates: start: 20080812
  18. VALTREX [Concomitant]
     Dates: start: 20050310
  19. IBUPROFEN [Concomitant]
     Dosage: 200 MG 2 EVERY DAY
     Route: 048
     Dates: start: 20080812
  20. DETROL LA [Concomitant]
     Dates: start: 20040228
  21. LISINOPRIL [Concomitant]
     Dates: start: 20050317
  22. ASPIR-LOW [Concomitant]
     Route: 048
     Dates: start: 20080812

REACTIONS (7)
  - HYPERLIPIDAEMIA [None]
  - OBESITY [None]
  - BLOOD CHOLESTEROL INCREASED [None]
  - TYPE 2 DIABETES MELLITUS [None]
  - WEIGHT INCREASED [None]
  - TYPE 1 DIABETES MELLITUS [None]
  - HYPERCHOLESTEROLAEMIA [None]
